FAERS Safety Report 9408282 (Version 10)
Quarter: 2015Q3

REPORT INFORMATION
  Report Type: Spontaneous
  Country: US (occurrence: US)
  Receive Date: 20130718
  Receipt Date: 20150923
  Transmission Date: 20151125
  Serious: Yes (Hospitalization, Other)
  Sender: FDA-Public Use
  Company Number: US-GLAXOSMITHKLINE-A1028483A

PATIENT
  Age: 37 Year
  Sex: Male

DRUGS (8)
  1. FLOLAN [Suspect]
     Active Substance: EPOPROSTENOL SODIUM
     Indication: COR PULMONALE CHRONIC
     Dosage: 30 NG/KG/MIN, CO
     Route: 042
     Dates: start: 20030319
  2. FLOLAN [Suspect]
     Active Substance: EPOPROSTENOL SODIUM
     Dosage: 30 NG/KG/MIN CONTINUOUSLY
  3. FLOLAN [Suspect]
     Active Substance: EPOPROSTENOL SODIUM
     Dosage: 30 NG/KG/MIN CONTINUOUSLY
     Route: 042
  4. LETAIRIS [Concomitant]
     Active Substance: AMBRISENTAN
  5. FLOLAN [Suspect]
     Active Substance: EPOPROSTENOL SODIUM
     Indication: PULMONARY ARTERIAL HYPERTENSION
     Dosage: UNK
     Dates: start: 20030319
  6. FLOLAN [Suspect]
     Active Substance: EPOPROSTENOL SODIUM
     Indication: PULMONARY HYPERTENSION
     Dosage: UNK
     Dates: start: 20030319
  7. COUMADIN [Concomitant]
     Active Substance: WARFARIN SODIUM
  8. FLOLAN [Suspect]
     Active Substance: EPOPROSTENOL SODIUM
     Dosage: 30 NG/KG/MIN
     Route: 042

REACTIONS (13)
  - Infection [Unknown]
  - Device connection issue [Unknown]
  - Surgery [Recovered/Resolved]
  - Pain in extremity [Unknown]
  - Weight decreased [Unknown]
  - Abnormal faeces [Unknown]
  - Diarrhoea [Unknown]
  - Hospitalisation [Unknown]
  - Pyrexia [Unknown]
  - Abdominal pain lower [Unknown]
  - Abdominal pain upper [Unknown]
  - Diarrhoea haemorrhagic [Recovered/Resolved]
  - Fluid retention [Unknown]

NARRATIVE: CASE EVENT DATE: 201307
